FAERS Safety Report 7284307-9 (Version None)
Quarter: 2011Q1

REPORT INFORMATION
  Report Type: 
  Country: None (occurrence: None)
  Receive Date: 20110209
  Receipt Date: 20110131
  Transmission Date: 20110831
  Serious: Yes (Hospitalization)
  Sender: FDA-Public Use
  Company Number: CO-WATSON-2011-01396

PATIENT
  Age: 27 Year
  Sex: Male

DRUGS (7)
  1. IBUPROFEN [Suspect]
     Indication: SUICIDE ATTEMPT
     Dosage: 6000 MG, SINGLE (10 - 600MG TABLETS)
     Route: 048
  2. MIRTAZAPINE (WATSON LABORATORIES) [Suspect]
     Indication: SUICIDE ATTEMPT
     Dosage: UNK
     Route: 048
  3. CIPROFLOXACIN HCL [Suspect]
     Indication: SUICIDE ATTEMPT
     Dosage: UNK
     Route: 048
  4. FLURAZEPAM (WATSON LABORATORIES) [Suspect]
     Indication: SUICIDE ATTEMPT
     Dosage: 240 MG, SINGLE (8 - 30MG TABLETS)
     Route: 048
  5. DEXKETOPROFEN [Suspect]
     Indication: SUICIDE ATTEMPT
     Dosage: 150 MG, SINGLE (6 - 25MG TABLETS)
     Route: 048
  6. RUPATADINE [Suspect]
     Indication: SUICIDE ATTEMPT
     Dosage: 100 MG, SINGLE (10 - 10MG TABLETS)
     Route: 048
  7. DIAZEPAM (WATSON LABORATORIES) [Suspect]
     Indication: SUICIDE ATTEMPT
     Dosage: 80 MG, SINGLE (8 - 10MG TABLETS)
     Route: 048

REACTIONS (4)
  - ELECTROCARDIOGRAM QT PROLONGED [None]
  - RENAL FAILURE ACUTE [None]
  - ELECTROCARDIOGRAM ABNORMAL [None]
  - OVERDOSE [None]
